FAERS Safety Report 17850444 (Version 2)
Quarter: 2020Q2

REPORT INFORMATION
  Report Type: Spontaneous
  Country: US (occurrence: US)
  Receive Date: 20200602
  Receipt Date: 20200605
  Transmission Date: 20200714
  Serious: Yes (Hospitalization)
  Sender: FDA-Public Use
  Company Number: US-RADIUS HEALTH INC.-2020US001882

PATIENT
  Age: 78 Year
  Sex: Female

DRUGS (1)
  1. TYMLOS [Suspect]
     Active Substance: ABALOPARATIDE
     Indication: OSTEOPOROSIS POSTMENOPAUSAL
     Dosage: 80 MCG, QD
     Route: 058

REACTIONS (3)
  - Fall [Not Recovered/Not Resolved]
  - Upper limb fracture [Recovering/Resolving]
  - Product storage error [Recovering/Resolving]

NARRATIVE: CASE EVENT DATE: 20200521
